FAERS Safety Report 7279770-3 (Version None)
Quarter: 2011Q1

REPORT INFORMATION
  Report Type: 
  Country: None (occurrence: None)
  Receive Date: 20110208
  Receipt Date: 20110201
  Transmission Date: 20110831
  Serious: Yes (Death, Hospitalization)
  Sender: FDA-Public Use
  Company Number: ES-CELGENEUS-144-21880-11012768

PATIENT
  Sex: Male

DRUGS (6)
  1. REVLIMID [Suspect]
     Indication: MULTIPLE MYELOMA
     Route: 048
     Dates: start: 20101203, end: 20101208
  2. SEPTRIM [Suspect]
     Indication: PROPHYLAXIS
     Route: 048
     Dates: start: 20101203, end: 20101208
  3. DEXAMETHASONE [Suspect]
     Indication: MULTIPLE MYELOMA
     Route: 065
     Dates: start: 20101203, end: 20101208
  4. PANTOPRAZOLE [Concomitant]
     Route: 051
     Dates: start: 20101211, end: 20101212
  5. PANTOPRAZOLE [Concomitant]
     Indication: PROPHYLAXIS
     Route: 048
     Dates: start: 20070101
  6. ADIRO [Concomitant]
     Indication: PROPHYLAXIS
     Route: 048
     Dates: start: 20070101, end: 20101208

REACTIONS (9)
  - ACUTE HEPATIC FAILURE [None]
  - DISSEMINATED INTRAVASCULAR COAGULATION [None]
  - PNEUMONIA [None]
  - CYTOLYTIC HEPATITIS [None]
  - SHOCK [None]
  - MULTI-ORGAN FAILURE [None]
  - HYPONATRAEMIA [None]
  - THROMBOCYTOPENIA [None]
  - ANURIA [None]
